FAERS Safety Report 6442285-6 (Version None)
Quarter: 2009Q4

REPORT INFORMATION
  Report Type: 
  Country: None (occurrence: None)
  Receive Date: 20091112
  Receipt Date: 20091027
  Transmission Date: 20100525
  Serious: Yes (Other)
  Sender: FDA-Public Use
  Company Number: B0601833A

PATIENT
  Age: 12 Year
  Sex: Female

DRUGS (3)
  1. FLUTICASONE PROPIONATE [Suspect]
     Indication: ASTHMA
     Dosage: INHALED
     Route: 055
  2. KALETRA [Suspect]
     Indication: HIV INFECTION
  3. COMBIVIR [Concomitant]

REACTIONS (2)
  - ADRENAL INSUFFICIENCY [None]
  - ADRENAL SUPPRESSION [None]
